FAERS Safety Report 20086238 (Version 1)
Quarter: 2021Q4

REPORT INFORMATION
  Report Type: Spontaneous
  Country: US (occurrence: None)
  Receive Date: 20211117
  Receipt Date: 20211117
  Transmission Date: 20220303
  Serious: Yes (Hospitalization)
  Sender: FDA-Public Use
  Company Number: None

PATIENT
  Age: 62 Year
  Sex: Male
  Weight: 87.54 kg

DRUGS (1)
  1. REGEN-COV [Suspect]
     Active Substance: CASIRIVIMAB\IMDEVIMAB
     Indication: COVID-19

REACTIONS (6)
  - Infusion related reaction [None]
  - Chills [None]
  - Muscle spasms [None]
  - Headache [None]
  - Pallor [None]
  - Heart rate increased [None]

NARRATIVE: CASE EVENT DATE: 20211117
